FAERS Safety Report 7709250-X (Version None)
Quarter: 2011Q3

REPORT INFORMATION
  Report Type: 
  Country: None (occurrence: None)
  Receive Date: 20110825
  Receipt Date: 20110815
  Transmission Date: 20111222
  Serious: Yes (Death, Hospitalization, Other)
  Sender: FDA-Public Use
  Company Number: DE-ROCHE-784523

PATIENT
  Sex: Female
  Weight: 80 kg

DRUGS (1)
  1. XELODA [Suspect]
     Dosage: SECOND CYCLE STARTED ON 28-FEB-2011
     Route: 048
     Dates: end: 20110309

REACTIONS (7)
  - DIARRHOEA [None]
  - ACUTE PRERENAL FAILURE [None]
  - VOMITING [None]
  - VENTRICULAR FIBRILLATION [None]
  - SUDDEN CARDIAC DEATH [None]
  - GENERAL PHYSICAL HEALTH DETERIORATION [None]
  - NAUSEA [None]
